FAERS Safety Report 8028014-3 (Version None)
Quarter: 2011Q4

REPORT INFORMATION
  Report Type: 
  Country: None (occurrence: None)
  Receive Date: 20111130
  Receipt Date: 20110516
  Transmission Date: 20120403
  Serious: Yes (Other)
  Sender: FDA-Public Use
  Company Number: US200906006009

PATIENT
  Age: 55 Year
  Sex: Male
  Weight: 102.5 kg

DRUGS (14)
  1. NEURONTIN [Concomitant]
  2. IBUPROFEN [Concomitant]
  3. TRAMADOL HCL [Concomitant]
  4. LUNESTA [Concomitant]
  5. CADUET [Concomitant]
  6. ASPIRIN [Concomitant]
  7. BYETTA [Suspect]
     Dosage: SUBCUTANEOUS ; 10 UG ,BID, SUBCUTANEOUS
     Route: 058
     Dates: start: 20081001
  8. BYETTA [Suspect]
     Dosage: SUBCUTANEOUS ; 10 UG ,BID, SUBCUTANEOUS
     Route: 058
     Dates: end: 20090301
  9. ACTOS [Concomitant]
  10. FLUOXETINE HYDROCHLORIDE [Concomitant]
  11. EXENATIDE UNK STRENGTH PEN, DISPOSABLE DEVICE (EXENATIDE PEN (UNKNOWN [Concomitant]
  12. GLIPIZIDE [Concomitant]
  13. ERGOCALCIFEROL [Concomitant]
  14. METFORMIN HCL [Concomitant]

REACTIONS (3)
  - PANCREATITIS [None]
  - ABDOMINAL PAIN [None]
  - RENAL INJURY [None]
